FAERS Safety Report 4731263-0 (Version None)
Quarter: 2005Q3

REPORT INFORMATION
  Report Type: 
  Country: None (occurrence: None)
  Receive Date: 20050728
  Receipt Date: 20050728
  Transmission Date: 20060218
  Serious: Yes (Hospitalization)
  Sender: FDA-Public Use
  Company Number: None

PATIENT
  Age: 35 Month
  Sex: Female
  Weight: 16 kg

DRUGS (4)
  1. MERCAPTOPURINE [Suspect]
     Indication: ACUTE LYMPHOCYTIC LEUKAEMIA
     Dosage: 25MG PO M-TH;50MGPO  P-X
     Route: 048
     Dates: start: 20041112
  2. VINCRISTINE [Concomitant]
  3. DEXAMETHASONE PULSES [Concomitant]
  4. METHOTREXATE [Concomitant]

REACTIONS (1)
  - VENOOCCLUSIVE LIVER DISEASE [None]
